FAERS Safety Report 6734468-2 (Version None)
Quarter: 2010Q2

REPORT INFORMATION
  Report Type: 
  Country: None (occurrence: None)
  Receive Date: 20100520
  Receipt Date: 20100506
  Transmission Date: 20101027
  Serious: Yes (Other)
  Sender: FDA-Public Use
  Company Number: US-ELI_LILLY_AND_COMPANY-US201005002897

PATIENT
  Sex: Female

DRUGS (10)
  1. FORTEO [Suspect]
     Indication: OSTEOPOROSIS
     Dosage: 20 UG, DAILY (1/D)
     Dates: start: 20090301
  2. FOSAMAX [Concomitant]
     Dosage: 75 MG, WEEKLY (1/W)
  3. CLIMARA [Concomitant]
     Dosage: UNK, WEEKLY (1/W)
     Route: 062
  4. AMITRIPTLINE HYDROCHLORIDE TAB [Concomitant]
     Dosage: 25 MG, EACH EVENING
  5. LISINOPRIL [Concomitant]
     Dosage: 10 MG, DAILY (1/D)
  6. CRESTOR /01588602/ [Concomitant]
     Dosage: 10 MG, DAILY (1/D)
  7. CRANBERRY [Concomitant]
  8. ASPIRIN [Concomitant]
     Dosage: 325 MG, UNKNOWN
  9. OSCAL /00108001/ [Concomitant]
  10. MACROBID [Concomitant]

REACTIONS (1)
  - BREAST CANCER [None]
